FAERS Safety Report 6905056-X (Version None)
Quarter: 2010Q3

REPORT INFORMATION
  Report Type: 
  Country: None (occurrence: None)
  Receive Date: 20100804
  Receipt Date: 20090909
  Transmission Date: 20110219
  Serious: No
  Sender: FDA-Public Use
  Company Number: US-PFIZER INC-2009231323

PATIENT
  Sex: Female
  Weight: 99.773 kg

DRUGS (9)
  1. LYRICA [Suspect]
     Indication: FIBROMYALGIA
     Dosage: 50 MG, 2X/DAY
     Dates: start: 20090601
  2. LYRICA [Suspect]
     Indication: SYSTEMIC LUPUS ERYTHEMATOSUS
  3. LYRICA [Suspect]
     Indication: MYALGIA
  4. LYRICA [Suspect]
     Indication: DIABETIC NEUROPATHY
  5. CARDIZEM [Concomitant]
     Indication: HYPERTENSION
     Dosage: 180 MG, 2X/DAY
  6. COZAAR [Concomitant]
     Indication: HYPERTENSION
  7. TOPROL-XL [Concomitant]
     Indication: HEART RATE IRREGULAR
  8. PRAVASTATIN [Concomitant]
     Indication: BLOOD CHOLESTEROL INCREASED
     Dosage: UNK
  9. ACTONEL [Concomitant]
     Indication: OSTEOPOROSIS
     Dosage: UNK

REACTIONS (3)
  - FATIGUE [None]
  - FEAR [None]
  - SOMNOLENCE [None]
